FAERS Safety Report 5478726-0 (Version None)
Quarter: 2007Q4

REPORT INFORMATION
  Report Type: 
  Country: None (occurrence: None)
  Receive Date: 20071005
  Receipt Date: 20071001
  Transmission Date: 20080405
  Serious: Yes (Hospitalization)
  Sender: FDA-Public Use
  Company Number: IT-BOEHRINGER INGELHEIM PHARMACEUTICALS, INC.-2007-IT-00334IT

PATIENT
  Sex: Male

DRUGS (9)
  1. SPIRIVA [Suspect]
     Indication: BRONCHOPNEUMOPATHY
     Route: 055
     Dates: start: 20070906, end: 20070908
  2. VASERETIC [Concomitant]
     Route: 048
  3. DURONITRIN [Concomitant]
     Route: 048
  4. VENITRIN [Concomitant]
     Route: 062
  5. GLIBEN [Concomitant]
     Route: 048
  6. TICLOPIDINA [Concomitant]
     Route: 048
  7. SODIO BICARBONATO [Concomitant]
  8. SODIO CLORURO [Concomitant]
  9. ALTIAZEM [Concomitant]
     Route: 048

REACTIONS (1)
  - RASH MACULO-PAPULAR [None]
